FAERS Safety Report 15498773 (Version 1)
Quarter: 2018Q4

REPORT INFORMATION
  Report Type: Spontaneous
  Country: US (occurrence: US)
  Receive Date: 20181005
  Receipt Date: 20181005
  Transmission Date: 20190205
  Serious: Yes (Hospitalization)
  Sender: FDA-Public Use
  Company Number: None

PATIENT
  Age: 74 Year
  Sex: Male

DRUGS (1)
  1. CEFAZOLIN [Suspect]
     Active Substance: CEFAZOLIN
     Indication: SURGERY
     Route: 042
     Dates: start: 20180927, end: 20180929

REACTIONS (3)
  - Deafness unilateral [None]
  - Deafness neurosensory [None]
  - Feeling abnormal [None]

NARRATIVE: CASE EVENT DATE: 20180929
